FAERS Safety Report 24691611 (Version 5)
Quarter: 2025Q2

REPORT INFORMATION
  Report Type: Spontaneous
  Country: US (occurrence: US)
  Receive Date: 20241203
  Receipt Date: 20250402
  Transmission Date: 20250716
  Serious: No
  Sender: PFIZER
  Company Number: US-PFIZER INC-202400309008

PATIENT
  Age: 17 Year
  Sex: Male

DRUGS (1)
  1. GENOTROPIN [Suspect]
     Active Substance: SOMATROPIN
     Dosage: 2.6 MG, DAILY

REACTIONS (4)
  - Drug dose omission by device [Unknown]
  - Device breakage [Unknown]
  - Device mechanical issue [Unknown]
  - Device defective [Unknown]
